FAERS Safety Report 14667118 (Version 1)
Quarter: 2018Q1

REPORT INFORMATION
  Report Type: Spontaneous
  Country: FR (occurrence: FR)
  Receive Date: 20180322
  Receipt Date: 20180322
  Transmission Date: 20180509
  Serious: Yes (Other)
  Sender: FDA-Public Use
  Company Number: FR-MERCK KGAA-2044273

PATIENT
  Age: 35 Year
  Sex: Female

DRUGS (1)
  1. NOVOTHYROX [Suspect]
     Active Substance: LEVOTHYROXINE SODIUM
     Indication: PRODUCT USED FOR UNKNOWN INDICATION
     Dates: start: 2017

REACTIONS (13)
  - Loss of personal independence in daily activities [None]
  - Mood altered [None]
  - Myalgia [None]
  - Nausea [None]
  - Aggression [None]
  - Anger [None]
  - Migraine [None]
  - Abdominal pain [None]
  - Diarrhoea [None]
  - Gamma-glutamyltransferase increased [None]
  - Feeling abnormal [None]
  - Fatigue [None]
  - Dizziness [None]

NARRATIVE: CASE EVENT DATE: 2017
